FAERS Safety Report 7124795-1 (Version None)
Quarter: 2010Q4

REPORT INFORMATION
  Report Type: 
  Country: None (occurrence: None)
  Receive Date: 20101123
  Receipt Date: 20101123
  Transmission Date: 20110411
  Serious: Yes (Hospitalization)
  Sender: FDA-Public Use
  Company Number: None

PATIENT
  Age: 60 Year
  Sex: Female
  Weight: 85.2762 kg

DRUGS (12)
  1. METHADONE HCL [Suspect]
     Indication: DRUG DEPENDENCE
     Dosage: 100 MG DAILY PO
     Route: 048
  2. DILTIAZEM CD [Concomitant]
  3. CYCLOBENZAPRINE [Concomitant]
  4. ASPIRIN [Concomitant]
  5. ENALAPRIL [Concomitant]
  6. LANTHANUM CARBONATE [Concomitant]
  7. DIPHENHYDRAMINE [Concomitant]
  8. GABAPENTIN [Concomitant]
  9. ESOMEPRAZOLE [Concomitant]
  10. HEPARIN [Concomitant]
  11. INSULIN ASPART [Concomitant]
  12. HUMULIN 70/30 [Concomitant]

REACTIONS (7)
  - CONFUSIONAL STATE [None]
  - HYPERGLYCAEMIA [None]
  - HYPERHIDROSIS [None]
  - HYPOTENSION [None]
  - LETHARGY [None]
  - SOMNOLENCE [None]
  - UNRESPONSIVE TO STIMULI [None]
